FAERS Safety Report 8583426-4 (Version None)
Quarter: 2012Q3

REPORT INFORMATION
  Report Type: 
  Country: None (occurrence: None)
  Receive Date: 20120809
  Receipt Date: 20120727
  Transmission Date: 20120928
  Serious: Yes (Other)
  Sender: FDA-Public Use
  Company Number: DK-FRI-1000026077

PATIENT
  Sex: Female

DRUGS (3)
  1. FOLIMET [Concomitant]
     Dosage: 5 MG
     Dates: start: 20040406
  2. CITALOPRAM HYDROBROMIDE [Suspect]
     Indication: DEPRESSION
     Dosage: 30 MG
     Route: 048
     Dates: start: 20020429
  3. SELEXID [Concomitant]
     Dates: start: 20040501

REACTIONS (2)
  - PREGNANCY [None]
  - PREMATURE DELIVERY [None]
